FAERS Safety Report 7406102-X (Version None)
Quarter: 2011Q2

REPORT INFORMATION
  Report Type: 
  Country: None (occurrence: None)
  Receive Date: 20110406
  Receipt Date: 20110406
  Transmission Date: 20111010
  Serious: No
  Sender: FDA-Public Use
  Company Number: None

PATIENT
  Age: 72 Year
  Sex: Male

DRUGS (3)
  1. ATENOLOL [Suspect]
  2. PERINDOPRIL ERBUMINE [Suspect]
  3. AMLODIPINE BESYLATE [Suspect]

REACTIONS (9)
  - ABDOMINAL DISCOMFORT [None]
  - NAUSEA [None]
  - DRUG HYPERSENSITIVITY [None]
  - PRURITUS [None]
  - PRODUCT SUBSTITUTION ISSUE [None]
  - REACTION TO DRUG EXCIPIENTS [None]
  - SKIN SWELLING [None]
  - HEADACHE [None]
  - DIZZINESS [None]
